FAERS Safety Report 25858886 (Version 2)
Quarter: 2025Q4

REPORT INFORMATION
  Report Type: Report from Study
  Country: EU (occurrence: EU)
  Receive Date: 20250929
  Receipt Date: 20251002
  Transmission Date: 20260117
  Serious: Yes (Hospitalization, Other)
  Sender: NOVARTIS
  Company Number: EU-002147023-NVSC2025DE117096

PATIENT
  Age: 75 Year
  Sex: Male
  Weight: 96 kg

DRUGS (4)
  1. PLUVICTO [Suspect]
     Active Substance: LUTETIUM LU-177 VIPIVOTIDE TETRAXETAN
     Indication: Hormone-refractory prostate cancer
     Dosage: 7400 MBQ (BASELINE / CYCLE 1 )
     Route: 065
     Dates: start: 20250310, end: 20250310
  2. PLUVICTO [Suspect]
     Active Substance: LUTETIUM LU-177 VIPIVOTIDE TETRAXETAN
     Dosage: 4975 MBQ (CYCLE 2)
     Route: 065
     Dates: start: 20250428, end: 20250428
  3. PLUVICTO [Suspect]
     Active Substance: LUTETIUM LU-177 VIPIVOTIDE TETRAXETAN
     Dosage: 5000 MBQ (CYCLE 3)
     Route: 065
     Dates: start: 20250610, end: 20250610
  4. PLUVICTO [Suspect]
     Active Substance: LUTETIUM LU-177 VIPIVOTIDE TETRAXETAN
     Dosage: 4975 MG
     Route: 042
     Dates: start: 20250721

REACTIONS (3)
  - Renal failure [Recovered/Resolved]
  - Underdose [Recovering/Resolving]
  - Off label use [Recovered/Resolved]

NARRATIVE: CASE EVENT DATE: 20250721
